FAERS Safety Report 24210787 (Version 1)
Quarter: 2024Q3

REPORT INFORMATION
  Report Type: Spontaneous
  Country: US (occurrence: None)
  Receive Date: 20240813
  Receipt Date: 20240813
  Transmission Date: 20241017
  Serious: Yes (Disabling, Other)
  Sender: Public
  Company Number: None

PATIENT
  Age: 65 Year
  Sex: Female
  Weight: 49.9 kg

DRUGS (2)
  1. LIDOCAINE HYDROCHLORIDE [Suspect]
     Active Substance: LIDOCAINE HYDROCHLORIDE
     Indication: Local anaesthesia
     Dosage: APPLY EVWERY 4 HR AS MEEDED TO WOUND    EV 4 HR ON THE SKIN-WOUND
     Route: 058
     Dates: start: 20220622, end: 20220711
  2. Multivitami [Concomitant]

REACTIONS (5)
  - Application site inflammation [None]
  - Rotator cuff syndrome [None]
  - Wound dehiscence [None]
  - Radiation skin injury [None]
  - Poor quality device used [None]

NARRATIVE: CASE EVENT DATE: 20220622
